FAERS Safety Report 15713362 (Version 1)
Quarter: 2018Q4

REPORT INFORMATION
  Report Type: Spontaneous
  Country: US (occurrence: US)
  Receive Date: 20181211
  Receipt Date: 20181211
  Transmission Date: 20190205
  Serious: No
  Sender: FDA-Public Use
  Company Number: None

PATIENT
  Age: 30 Year
  Sex: Female

DRUGS (1)
  1. PARAGARD T 380A [Suspect]
     Active Substance: COPPER
     Indication: CONTRACEPTION
     Dosage: ?          QUANTITY:1 IUD;?

REACTIONS (6)
  - Oligomenorrhoea [None]
  - Abdominal distension [None]
  - Loss of personal independence in daily activities [None]
  - Discomfort [None]
  - Muscle spasms [None]
  - Feeling abnormal [None]

NARRATIVE: CASE EVENT DATE: 20181030
